FAERS Safety Report 18369669 (Version 1)
Quarter: 2020Q4

REPORT INFORMATION
  Report Type: Spontaneous
  Country: US (occurrence: US)
  Receive Date: 20201012
  Receipt Date: 20201012
  Transmission Date: 20210114
  Serious: Yes (Life-Threatening, Hospitalization, Other)
  Sender: FDA-Public Use
  Company Number: US-GLENMARK PHARMACEUTICALS-2020GMK049894

PATIENT

DRUGS (5)
  1. METOPROLOL SUCCINATE. [Concomitant]
     Active Substance: METOPROLOL SUCCINATE
     Indication: PRODUCT USED FOR UNKNOWN INDICATION
     Dosage: 150 MILLIGRAM, OD
     Route: 048
  2. ACETYLSALICYLIC ACID [Concomitant]
     Active Substance: ASPIRIN
     Indication: PRODUCT USED FOR UNKNOWN INDICATION
     Dosage: 81 MILLIGRAM, OD
     Route: 048
  3. ACICLOVIR [Suspect]
     Active Substance: ACYCLOVIR
     Dosage: 5 MILLIGRAM/KILOGRAM
     Route: 042
  4. AMLODIPINE [Concomitant]
     Active Substance: AMLODIPINE BESYLATE
     Indication: PRODUCT USED FOR UNKNOWN INDICATION
     Dosage: 5 MILLIGRAM, OD
     Route: 048
  5. ACICLOVIR [Suspect]
     Active Substance: ACYCLOVIR
     Indication: VARICELLA ZOSTER VIRUS INFECTION
     Dosage: 4000 MILLIGRAM, QD (800 MG FIVE TIMES DAILY)
     Route: 048

REACTIONS (4)
  - Incorrect dose administered [Unknown]
  - Encephalopathy [Recovered/Resolved]
  - Neurotoxicity [Recovered/Resolved]
  - Antiviral drug level above therapeutic [Recovered/Resolved]
